FAERS Safety Report 13902941 (Version 5)
Quarter: 2017Q4

REPORT INFORMATION
  Report Type: Report from Study
  Country: US (occurrence: US)
  Receive Date: 20170824
  Receipt Date: 20171206
  Transmission Date: 20180320
  Serious: Yes (Hospitalization)
  Sender: FDA-Public Use
  Company Number: US-EXELIXIS-CABO-17010216

PATIENT
  Sex: Female

DRUGS (2)
  1. COMETRIQ [Suspect]
     Active Substance: CABOZANTINIB S-MALATE
     Indication: BREAST CANCER FEMALE
     Dosage: 60 MG, QD
     Route: 048
     Dates: start: 20170915, end: 201710
  2. COMETRIQ [Suspect]
     Active Substance: CABOZANTINIB S-MALATE
     Indication: THYROID CANCER
     Dosage: 140 MG, QD
     Route: 048
     Dates: start: 20170722, end: 201708

REACTIONS (15)
  - Rectal haemorrhage [Unknown]
  - Abnormal faeces [Unknown]
  - Anal abscess [Not Recovered/Not Resolved]
  - Dysphagia [Unknown]
  - Intestinal mass [Unknown]
  - General physical health deterioration [Unknown]
  - Urinary tract infection [Unknown]
  - Decreased appetite [Not Recovered/Not Resolved]
  - Pain [Not Recovered/Not Resolved]
  - Anorectal infection [Unknown]
  - Dehydration [Unknown]
  - Constipation [Not Recovered/Not Resolved]
  - Parosmia [Not Recovered/Not Resolved]
  - Haemorrhoids [Unknown]
  - Retching [Unknown]
